FAERS Safety Report 6211459-1 (Version None)
Quarter: 2009Q2

REPORT INFORMATION
  Report Type: 
  Country: None (occurrence: None)
  Receive Date: 20090522
  Receipt Date: 20090402
  Transmission Date: 20091009
  Serious: No
  Sender: FDA-Public Use
  Company Number: 8044522

PATIENT
  Sex: Female

DRUGS (1)
  1. CERTOLIZUMAB PEGOL [Suspect]
     Indication: CROHN'S DISEASE
     Dosage: 400 MG SC
     Route: 058
     Dates: start: 20090318

REACTIONS (4)
  - ABDOMINAL DISTENSION [None]
  - BREAST PAIN [None]
  - MUSCULAR WEAKNESS [None]
  - MYALGIA [None]
